FAERS Safety Report 8160605-1 (Version None)
Quarter: 2012Q1

REPORT INFORMATION
  Report Type: 
  Country: None (occurrence: None)
  Receive Date: 20120223
  Receipt Date: 20120217
  Transmission Date: 20120608
  Serious: Yes (Other)
  Sender: FDA-Public Use
  Company Number: BR-ASTRAZENECA-2012SE11134

PATIENT
  Sex: Female

DRUGS (2)
  1. BRILINTA [Suspect]
     Route: 048
     Dates: start: 20110801
  2. BRILINTA [Suspect]
     Route: 048

REACTIONS (4)
  - DIARRHOEA [None]
  - PURPURA [None]
  - WEIGHT DECREASED [None]
  - INFARCTION [None]
